FAERS Safety Report 15396112 (Version 2)
Quarter: 2018Q3

REPORT INFORMATION
  Report Type: Report from Study
  Country: CA (occurrence: CA)
  Receive Date: 20180918
  Receipt Date: 20180927
  Transmission Date: 20181010
  Serious: Yes (Hospitalization, Other)
  Sender: FDA-Public Use
  Company Number: PHHY2017CA082290

PATIENT
  Sex: Male

DRUGS (4)
  1. SANDOSTATIN LAR DEPOT [Suspect]
     Active Substance: OCTREOTIDE ACETATE
     Indication: PANCREATIC NEUROENDOCRINE TUMOUR
     Dosage: 30 MG, QMO
     Route: 030
     Dates: start: 20100908
  2. SANDOSTATIN LAR DEPOT [Suspect]
     Active Substance: OCTREOTIDE ACETATE
     Dosage: 40 MG, QMO
     Route: 030
     Dates: start: 20140716
  3. AFINITOR [Suspect]
     Active Substance: EVEROLIMUS
     Indication: PANCREATIC NEUROENDOCRINE TUMOUR
     Dosage: 10 MG, QD
     Route: 048
     Dates: start: 20170423
  4. AFINITOR [Suspect]
     Active Substance: EVEROLIMUS
     Dosage: 10 MG, QD
     Route: 048
     Dates: start: 20180905

REACTIONS (17)
  - Stomatitis [Unknown]
  - Blood glucose abnormal [Recovering/Resolving]
  - Mouth ulceration [Unknown]
  - Oedema peripheral [Not Recovered/Not Resolved]
  - Erythema [Unknown]
  - Hypertension [Unknown]
  - Blister [Unknown]
  - Diarrhoea [Unknown]
  - Fatigue [Unknown]
  - Abscess oral [Unknown]
  - Blood iron decreased [Unknown]
  - Anaemia [Unknown]
  - Lip dry [Unknown]
  - Asthenia [Unknown]
  - Pneumonia [Recovering/Resolving]
  - Oral discomfort [Unknown]
  - Blood pressure increased [Recovering/Resolving]

NARRATIVE: CASE EVENT DATE: 2017
